FAERS Safety Report 8434684 (Version 8)
Quarter: 2014Q1

REPORT INFORMATION
  Report Type: Spontaneous
  Country: JP (occurrence: JP)
  Receive Date: 20120301
  Receipt Date: 20140307
  Transmission Date: 20141002
  Serious: Yes (Other)
  Sender: FDA-Public Use
  Company Number: JP-JNJFOC-20120212656

PATIENT
  Age: 49 Year
  Sex: Male
  Weight: 90 kg

DRUGS (10)
  1. TRAMCET [Suspect]
     Indication: PAIN
     Route: 048
     Dates: start: 20130911
  2. TRAMCET [Suspect]
     Indication: PAIN
     Route: 048
     Dates: start: 20130612
  3. TRAMCET [Suspect]
     Indication: PAIN
     Route: 048
     Dates: start: 20131030
  4. TRAMCET [Suspect]
     Indication: PAIN
     Route: 048
     Dates: start: 20130403
  5. TRAMCET [Suspect]
     Indication: PAIN
     Dosage: 2 PER 1 DAY
     Route: 048
     Dates: start: 20130227
  6. TRAMCET [Suspect]
     Indication: PAIN
     Dosage: 2 PER 1 DAY
     Route: 048
     Dates: start: 20120516
  7. TRAMCET [Suspect]
     Indication: PAIN
     Dosage: 2 PER 1 DAY
     Route: 048
     Dates: start: 20120222
  8. TRAMCET [Suspect]
     Indication: PAIN
     Dosage: 2 DF X 2 PER 1 DAY
     Route: 048
     Dates: start: 20111220, end: 20120123
  9. LOXONIN [Concomitant]
     Indication: PAIN
     Dosage: 100 MG/ SHEET , 2- 3 SHEETS/DAY
     Route: 062
  10. LIPITOR [Concomitant]
     Indication: HYPERLIPIDAEMIA
     Route: 048

REACTIONS (2)
  - Visual acuity reduced [Recovered/Resolved]
  - Somnolence [Recovered/Resolved]
